FAERS Safety Report 4801792-X (Version None)
Quarter: 2005Q4

REPORT INFORMATION
  Report Type: 
  Country: None (occurrence: None)
  Receive Date: 20051018
  Receipt Date: 20051012
  Transmission Date: 20060501
  Serious: Yes (Other)
  Sender: FDA-Public Use
  Company Number: US-JNJFOC-20051003057

PATIENT
  Sex: Female
  Weight: 77.11 kg

DRUGS (1)
  1. FENTANYL [Suspect]
     Route: 062
     Dates: start: 20050201

REACTIONS (3)
  - HYPERHIDROSIS [None]
  - THYROID DISORDER [None]
  - WEIGHT INCREASED [None]
